FAERS Safety Report 20056859 (Version 1)
Quarter: 2021Q4

REPORT INFORMATION
  Report Type: Spontaneous
  Country: US (occurrence: US)
  Receive Date: 20211111
  Receipt Date: 20211111
  Transmission Date: 20220303
  Serious: No
  Sender: FDA-Public Use
  Company Number: US-CELGENE-USA-20211100346

PATIENT
  Sex: Male
  Weight: 108 kg

DRUGS (1)
  1. REVLIMID [Suspect]
     Active Substance: LENALIDOMIDE
     Indication: Plasma cell myeloma
     Dosage: 25 MG
     Route: 048
     Dates: start: 20211024

REACTIONS (5)
  - Feeling abnormal [Unknown]
  - Insomnia [Unknown]
  - Decreased appetite [Unknown]
  - Abdominal pain [Unknown]
  - Constipation [Unknown]
